FAERS Safety Report 23069909 (Version 14)
Quarter: 2024Q4

REPORT INFORMATION
  Report Type: Report from Study
  Country: PL (occurrence: PL)
  Receive Date: 20231016
  Receipt Date: 20241031
  Transmission Date: 20250115
  Serious: Yes (Hospitalization)
  Sender: PFIZER
  Company Number: PL-009507513-2309POL009583

PATIENT
  Age: 59 Year
  Sex: Female
  Weight: 60.8 kg

DRUGS (23)
  1. CARBOPLATIN [Suspect]
     Active Substance: CARBOPLATIN
     Indication: Non-small cell lung cancer metastatic
     Dosage: 5 AREA UNDER THE CURVE (AUC), 1Q3W
     Route: 042
     Dates: start: 20230822, end: 20230822
  2. PEMETREXED [Suspect]
     Active Substance: PEMETREXED
     Indication: Non-small cell lung cancer metastatic
     Dosage: 500 MILLIGRAM/SQ. METER, 1Q3W
     Route: 042
     Dates: start: 20230822, end: 20231122
  3. PEMETREXED [Suspect]
     Active Substance: PEMETREXED
     Dosage: 500 MILLIGRAM/SQ. METER, 1Q3W
     Route: 042
     Dates: start: 20231221, end: 20240110
  4. PEMBROLIZUMAB [Suspect]
     Active Substance: PEMBROLIZUMAB
     Indication: Non-small cell lung cancer metastatic
     Dosage: 200 MILLIGRAM, 1Q3W
     Route: 042
     Dates: start: 20230822
  5. PEMBROLIZUMAB [Suspect]
     Active Substance: PEMBROLIZUMAB
     Indication: Non-small cell lung cancer metastatic
  6. ACASUNLIMAB [Suspect]
     Active Substance: ACASUNLIMAB
     Indication: Non-small cell lung cancer metastatic
     Dosage: 100 MG, EVERY 3 WEEKS
     Route: 042
     Dates: start: 20230822
  7. NITRENDIPINE [Concomitant]
     Active Substance: NITRENDIPINE
     Dosage: UNK
     Dates: start: 20230822, end: 20230822
  8. PREDNISONE ACETATE [Concomitant]
     Active Substance: PREDNISONE ACETATE
     Dosage: UNK
     Dates: start: 20230906, end: 20230907
  9. HEPAREGEN [Concomitant]
     Dosage: UNK
     Dates: start: 20230905
  10. HEPAREGEN [Concomitant]
     Dosage: UNK
     Dates: start: 20231025, end: 20231215
  11. MYCOPHENOLATE MOFETIL [Concomitant]
     Active Substance: MYCOPHENOLATE MOFETIL
     Dosage: UNK
     Dates: start: 20230911, end: 20231024
  12. LEVETIRACETAM [Concomitant]
     Active Substance: LEVETIRACETAM
     Dosage: UNK
     Dates: start: 20230626
  13. DEXAMETHASONE [Concomitant]
     Active Substance: DEXAMETHASONE
     Dosage: UNK
     Dates: start: 20230822, end: 20231102
  14. ONDANSETRON [Concomitant]
     Active Substance: ONDANSETRON
     Dosage: UNK
     Dates: start: 20230822, end: 20231102
  15. FOLIK [Concomitant]
     Dosage: UNK
     Dates: start: 20230822
  16. ATOSSA [ONDANSETRON HYDROCHLORIDE] [Concomitant]
     Dosage: UNK
     Dates: start: 20230822
  17. VITAMIN B12 [Concomitant]
     Active Substance: CYANOCOBALAMIN
     Dosage: UNK
     Dates: start: 20230822, end: 20231011
  18. CAPTOPRIL [Concomitant]
     Active Substance: CAPTOPRIL
     Indication: Non-small cell lung cancer metastatic
     Dosage: UNK
     Dates: start: 20230822, end: 20230822
  19. DEXAMETHASONE [Concomitant]
     Active Substance: DEXAMETHASONE
     Dosage: UNK
     Dates: start: 20230822, end: 20230823
  20. CYANOCOBALAMIN [Concomitant]
     Active Substance: CYANOCOBALAMIN
     Dosage: UNK
     Dates: start: 20230822, end: 20231011
  21. DEXAMETHASONE [Concomitant]
     Active Substance: DEXAMETHASONE
     Dosage: UNK
     Dates: start: 20230822, end: 20230823
  22. PANTOPRAZOLE SODIUM [Concomitant]
     Active Substance: PANTOPRAZOLE SODIUM
     Dosage: UNK
     Dates: start: 20230906, end: 20231108
  23. PREDNISONE [Concomitant]
     Active Substance: PREDNISONE
     Dosage: UNK
     Dates: start: 20230906, end: 20230907

REACTIONS (1)
  - Hepatitis [Recovered/Resolved]

NARRATIVE: CASE EVENT DATE: 20230905
